FAERS Safety Report 9555481 (Version 1)
Quarter: 2013Q3

REPORT INFORMATION
  Report Type: Spontaneous
  Country: IT (occurrence: IT)
  Receive Date: 20130926
  Receipt Date: 20130926
  Transmission Date: 20140515
  Serious: Yes (Death, Other)
  Sender: FDA-Public Use
  Company Number: PHHY2013IT105167

PATIENT
  Age: 73 Year
  Sex: Male

DRUGS (3)
  1. ZOLEDRONATE [Suspect]
     Indication: PLASMA CELL MYELOMA
     Dosage: MONTHLY
     Route: 042
  2. DEXAMETHASONE [Suspect]
     Indication: PLASMA CELL MYELOMA
     Dosage: MONTHLY
     Route: 042
  3. DEXAMETHASONE [Suspect]
     Dosage: 40 MG, (DAYS 1 TO2, 8 TO 9 AND 15 TO 16)
     Route: 042

REACTIONS (8)
  - Cardiac arrest [Fatal]
  - Exophthalmos [Recovered/Resolved]
  - Periorbital oedema [Recovered/Resolved]
  - Conjunctival hyperaemia [Recovered/Resolved]
  - Diplopia [Recovered/Resolved]
  - Pain [Recovered/Resolved]
  - Visual acuity reduced [Unknown]
  - Extraocular muscle disorder [Unknown]
